FAERS Safety Report 16905109 (Version 1)
Quarter: 2019Q4

REPORT INFORMATION
  Report Type: Spontaneous
  Country: US (occurrence: US)
  Receive Date: 20191010
  Receipt Date: 20191010
  Transmission Date: 20200122
  Serious: Yes (Disabling)
  Sender: FDA-Public Use
  Company Number: None

PATIENT
  Age: 67 Year
  Sex: Female
  Weight: 112.5 kg

DRUGS (1)
  1. GADOLINIUM [Suspect]
     Active Substance: GADOLINIUM
     Indication: SCAN WITH CONTRAST
     Dates: start: 20080301, end: 20140601

REACTIONS (3)
  - Muscular weakness [None]
  - Gait inability [None]
  - Asthenia [None]

NARRATIVE: CASE EVENT DATE: 20080301
